FAERS Safety Report 7166135-8 (Version None)
Quarter: 2010Q4

REPORT INFORMATION
  Report Type: 
  Country: None (occurrence: None)
  Receive Date: 20101216
  Receipt Date: 20101207
  Transmission Date: 20110411
  Serious: Yes (Hospitalization)
  Sender: FDA-Public Use
  Company Number: IS-JNJFOC-20101202983

PATIENT
  Age: 5 Decade
  Sex: Female

DRUGS (17)
  1. METHYLPHENIDATE [Suspect]
     Indication: ATTENTION DEFICIT/HYPERACTIVITY DISORDER
     Route: 048
  2. TRAMADOL HCL [Interacting]
     Indication: ILL-DEFINED DISORDER
     Route: 065
  3. MODAFINIL [Interacting]
     Indication: HYPERVIGILANCE
     Route: 065
  4. MODAFINIL [Interacting]
     Route: 065
  5. LEVOMEPROMAZINE [Interacting]
     Indication: SLEEP DISORDER THERAPY
     Route: 065
  6. LEVOMEPROMAZINE [Interacting]
     Route: 065
  7. DULOXETINE HYDROCHLORIDE [Interacting]
     Indication: DEPRESSION
     Route: 065
  8. CLOMIPRAMINE HCL [Interacting]
     Indication: DEPRESSION
     Route: 065
  9. SERTRALINE [Interacting]
     Indication: DEPRESSION
     Route: 065
  10. ACETAMINOPHEN W/ CODEINE [Concomitant]
     Indication: ILL-DEFINED DISORDER
     Route: 065
  11. METFORMIN HCL [Concomitant]
     Indication: ILL-DEFINED DISORDER
     Route: 065
  12. RABEPRAZOLE SODIUM [Concomitant]
     Indication: ILL-DEFINED DISORDER
     Route: 065
  13. METOPROLOL [Concomitant]
     Indication: ILL-DEFINED DISORDER
     Route: 065
  14. ATORVASTATIN [Concomitant]
     Indication: ILL-DEFINED DISORDER
     Route: 065
  15. LEVOTHYROXINE [Concomitant]
     Indication: ILL-DEFINED DISORDER
     Route: 065
  16. MAGNESIUM [Concomitant]
     Indication: ILL-DEFINED DISORDER
     Route: 065
  17. VITAMIN D [Concomitant]
     Indication: ILL-DEFINED DISORDER
     Route: 065

REACTIONS (10)
  - ANAEMIA [None]
  - DECREASED APPETITE [None]
  - DRUG INTERACTION [None]
  - DRUG LEVEL INCREASED [None]
  - FLANK PAIN [None]
  - ORTHOSTATIC HYPOTENSION [None]
  - PRURITUS [None]
  - RENAL IMPAIRMENT [None]
  - SEROTONIN SYNDROME [None]
  - WEIGHT DECREASED [None]
